FAERS Safety Report 9604642 (Version 3)
Quarter: 2014Q1

REPORT INFORMATION
  Report Type: Spontaneous
  Country: US (occurrence: US)
  Receive Date: 20131008
  Receipt Date: 20140127
  Transmission Date: 20141002
  Serious: Yes (Life-Threatening, Hospitalization, Other)
  Sender: FDA-Public Use
  Company Number: US-BAYER-2013-121116

PATIENT
  Age: 29 Year
  Sex: Female

DRUGS (1)
  1. MIRENA [Suspect]
     Dosage: 20 MCG/DL, CONT
     Route: 015
     Dates: start: 20130325, end: 20130530

REACTIONS (12)
  - Uterine perforation [None]
  - Injury [None]
  - General physical health deterioration [None]
  - Anxiety [None]
  - Anhedonia [None]
  - Emotional distress [None]
  - Pain [None]
  - Genital haemorrhage [None]
  - Abdominal pain lower [None]
  - Dyspareunia [None]
  - Menorrhagia [None]
  - Device dislocation [None]
